FAERS Safety Report 6762785-9 (Version None)
Quarter: 2010Q2

REPORT INFORMATION
  Report Type: 
  Country: None (occurrence: None)
  Receive Date: 20100609
  Receipt Date: 20100603
  Transmission Date: 20101027
  Serious: Yes (Other)
  Sender: FDA-Public Use
  Company Number: B0658781A

PATIENT
  Age: 61 Year
  Sex: Male

DRUGS (3)
  1. AVODART [Suspect]
     Route: 048
     Dates: start: 20090101
  2. SEDATIVE [Concomitant]
     Indication: ANXIETY
     Route: 065
  3. TAMSULOSINE [Concomitant]
     Route: 048
     Dates: start: 20090101, end: 20090301

REACTIONS (6)
  - FATIGUE [None]
  - FEELING COLD [None]
  - HOT FLUSH [None]
  - HYPERHIDROSIS [None]
  - MUSCLE ATROPHY [None]
  - WEIGHT INCREASED [None]
